FAERS Safety Report 23337547 (Version 1)
Quarter: 2023Q4

REPORT INFORMATION
  Report Type: Spontaneous
  Country: MY (occurrence: MY)
  Receive Date: 20231226
  Receipt Date: 20231226
  Transmission Date: 20240110
  Serious: Yes (Other)
  Sender: FDA-Public Use
  Company Number: MY-BAYER-2023A182975

PATIENT
  Age: 57 Year
  Sex: Female

DRUGS (2)
  1. EYLEA [Suspect]
     Active Substance: AFLIBERCEPT
     Indication: Retinal vein occlusion
     Dosage: 0.05 ML, 40 MG/ML
     Dates: start: 20231108, end: 20231115
  2. ARCOXIA [Concomitant]
     Active Substance: ETORICOXIB
     Indication: Injection site pain
     Dates: end: 20231115

REACTIONS (1)
  - Asthenia [Recovered/Resolved]
